FAERS Safety Report 19578709 (Version 1)
Quarter: 2021Q3

REPORT INFORMATION
  Report Type: Report from Study
  Country: FR (occurrence: FR)
  Receive Date: 20210719
  Receipt Date: 20210719
  Transmission Date: 20211014
  Serious: Yes (Hospitalization, Other)
  Sender: FDA-Public Use
  Company Number: FR-TAKEDA-FR201846318

PATIENT
  Age: 76 Year
  Sex: Male
  Weight: 58 kg

DRUGS (20)
  1. TEDUGLUTIDE [Suspect]
     Active Substance: TEDUGLUTIDE
     Dosage: 2.8 MG (0.05 MG/KG), 7 DOSES PER WEEK
     Route: 065
     Dates: start: 20180108
  2. VITAMIN B12 [Concomitant]
     Active Substance: CYANOCOBALAMIN
     Indication: SUPPLEMENTATION THERAPY
  3. TEDUGLUTIDE [Suspect]
     Active Substance: TEDUGLUTIDE
     Indication: SHORT-BOWEL SYNDROME
     Dosage: 2.85 MG (0.05 MG/KG DAILY DOSE), OTHER (7 DOSES PER WEEK)
     Route: 065
     Dates: start: 20160115, end: 20170706
  4. TEDUGLUTIDE [Suspect]
     Active Substance: TEDUGLUTIDE
     Dosage: 2.85 MG (0.05 MG/KG), 3 DOSES PER WEEK
     Route: 065
     Dates: start: 20170706, end: 20170901
  5. VITAMIN D3 [Concomitant]
     Active Substance: CHOLECALCIFEROL
     Indication: SUPPLEMENTATION THERAPY
  6. VANCOMYCINE [Concomitant]
     Active Substance: VANCOMYCIN
     Indication: DERMATITIS INFECTED
     Dosage: 999 UNKOWN
     Route: 042
     Dates: start: 201806, end: 201806
  7. ZYVOXID [Concomitant]
     Active Substance: LINEZOLID
     Indication: DERMATITIS INFECTED
     Dosage: 999 UNKNOWN
     Route: 048
     Dates: start: 201806, end: 201806
  8. TAZOCILLINE [Concomitant]
     Active Substance: PIPERACILLIN SODIUM\TAZOBACTAM SODIUM
     Indication: DERMATITIS INFECTED
     Dosage: 999 UNKOWN
     Route: 042
     Dates: start: 201806, end: 201806
  9. TEDUGLUTIDE [Suspect]
     Active Substance: TEDUGLUTIDE
     Indication: SHORT-BOWEL SYNDROME
     Dosage: 2.85 MG (0.05 MG/KG DAILY DOSE), OTHER (7 DOSES PER WEEK)
     Route: 065
     Dates: start: 20160115, end: 20170706
  10. LOPERAMIDE [Concomitant]
     Active Substance: LOPERAMIDE
     Indication: DIARRHOEA
  11. TEDUGLUTIDE [Suspect]
     Active Substance: TEDUGLUTIDE
     Dosage: 2.8 MG (0.05 MG/KG), 7 DOSES PER WEEK
     Route: 065
     Dates: start: 20180108
  12. VANCOMYCINE [Concomitant]
     Active Substance: VANCOMYCIN
     Indication: DEVICE RELATED INFECTION
     Dosage: 30 MILLIGRAM/KILOGRAM, FOR 24 HRS
     Route: 042
     Dates: start: 20170803, end: 20170813
  13. TEDUGLUTIDE [Suspect]
     Active Substance: TEDUGLUTIDE
     Indication: SHORT-BOWEL SYNDROME
     Dosage: 2.85 MG (0.05 MG/KG DAILY DOSE), OTHER (7 DOSES PER WEEK)
     Route: 065
     Dates: start: 20160115, end: 20170706
  14. TEDUGLUTIDE [Suspect]
     Active Substance: TEDUGLUTIDE
     Indication: SHORT-BOWEL SYNDROME
     Dosage: 2.85 MG (0.05 MG/KG DAILY DOSE), OTHER (7 DOSES PER WEEK)
     Route: 065
     Dates: start: 20160115, end: 20170706
  15. QUESTRAN [Concomitant]
     Active Substance: CHOLESTYRAMINE
     Indication: DIARRHOEA
  16. TEDUGLUTIDE [Suspect]
     Active Substance: TEDUGLUTIDE
     Dosage: 2.85 MG (0.05 MG/KG), 3 DOSES PER WEEK
     Route: 065
     Dates: start: 20170706, end: 20170901
  17. TEDUGLUTIDE [Suspect]
     Active Substance: TEDUGLUTIDE
     Dosage: 2.8 MG (0.05 MG/KG), 7 DOSES PER WEEK
     Route: 065
     Dates: start: 20180108
  18. TEDUGLUTIDE [Suspect]
     Active Substance: TEDUGLUTIDE
     Dosage: 2.8 MG (0.05 MG/KG), 7 DOSES PER WEEK
     Route: 065
     Dates: start: 20180108
  19. TEDUGLUTIDE [Suspect]
     Active Substance: TEDUGLUTIDE
     Dosage: 2.85 MG (0.05 MG/KG), 3 DOSES PER WEEK
     Route: 065
     Dates: start: 20170706, end: 20170901
  20. TEDUGLUTIDE [Suspect]
     Active Substance: TEDUGLUTIDE
     Dosage: 2.85 MG (0.05 MG/KG), 3 DOSES PER WEEK
     Route: 065
     Dates: start: 20170706, end: 20170901

REACTIONS (1)
  - Dermatitis infected [Recovered/Resolved]

NARRATIVE: CASE EVENT DATE: 20180529
